FAERS Safety Report 6378776-6 (Version None)
Quarter: 2009Q3

REPORT INFORMATION
  Report Type: 
  Country: None (occurrence: None)
  Receive Date: 20090928
  Receipt Date: 20090915
  Transmission Date: 20100115
  Serious: Yes (Other)
  Sender: FDA-Public Use
  Company Number: JP-PFIZER INC-2009215745

PATIENT
  Age: 56 Year

DRUGS (4)
  1. LIPITOR [Suspect]
     Indication: HYPERLIPIDAEMIA
     Dosage: 10 MG, DAILY
     Route: 048
     Dates: end: 20090413
  2. CHOLEBRINE [Concomitant]
     Dosage: UNK
     Route: 048
  3. FLAVITAN [Concomitant]
     Dosage: UNK
  4. PYDOXAL [Concomitant]
     Dosage: UNK

REACTIONS (1)
  - ORAL MUCOSA EROSION [None]
